FAERS Safety Report 4583325-9 (Version None)
Quarter: 2005Q1

REPORT INFORMATION
  Report Type: 
  Country: None (occurrence: None)
  Receive Date: 20050125
  Receipt Date: 20040908
  Transmission Date: 20050727
  Serious: No
  Sender: FDA-Public Use
  Company Number: USA040259005

PATIENT
  Age: 72 Year
  Sex: Female
  Weight: 42 kg

DRUGS (9)
  1. FORTEO [Suspect]
     Indication: OSTEOPOROSIS
     Dates: start: 20031212
  2. ROCALTROL [Concomitant]
  3. COLCHICINE [Concomitant]
  4. HYDROCODONE [Concomitant]
  5. DOCUSATE [Concomitant]
  6. MIRALAX [Concomitant]
  7. COUMADIN [Concomitant]
  8. FOLIC ACID [Concomitant]
  9. CALCIUM PLUS D [Concomitant]

REACTIONS (6)
  - APPETITE DISORDER [None]
  - DIZZINESS [None]
  - INJECTION SITE PAIN [None]
  - NAUSEA [None]
  - VOMITING [None]
  - WEIGHT DECREASED [None]
